FAERS Safety Report 5922706-5 (Version None)
Quarter: 2008Q4

REPORT INFORMATION
  Report Type: 
  Country: None (occurrence: None)
  Receive Date: 20081017
  Receipt Date: 20081009
  Transmission Date: 20090506
  Serious: Yes (Other)
  Sender: FDA-Public Use
  Company Number: US-PURDUE-USA_2008_0035259

PATIENT
  Sex: Male

DRUGS (2)
  1. MS CONTIN [Suspect]
     Indication: PAIN
     Dosage: 100 MG, BID
     Dates: start: 20080901
  2. MORPHINE SULFATE INJ [Suspect]
     Indication: PAIN
     Dosage: 30 MG, QID PRN
     Dates: start: 20080901

REACTIONS (4)
  - GENERAL PHYSICAL HEALTH DETERIORATION [None]
  - INSOMNIA [None]
  - PAIN [None]
  - SELF-INJURIOUS IDEATION [None]
